FAERS Safety Report 6907079-3 (Version None)
Quarter: 2010Q3

REPORT INFORMATION
  Report Type: 
  Country: None (occurrence: None)
  Receive Date: 20100804
  Receipt Date: 20070712
  Transmission Date: 20110219
  Serious: Yes (Hospitalization)
  Sender: FDA-Public Use
  Company Number: PFIZER INC-2007058143

PATIENT
  Sex: Female
  Weight: 77.1 kg

DRUGS (4)
  1. CELEBREX [Suspect]
     Indication: ARTHRITIS
  2. MORPHINE [Concomitant]
  3. DEMEROL [Concomitant]
  4. DARVOCET [Concomitant]

REACTIONS (1)
  - CARDIAC FAILURE CONGESTIVE [None]
